FAERS Safety Report 7888622-7 (Version None)
Quarter: 2011Q4

REPORT INFORMATION
  Report Type: 
  Country: None (occurrence: None)
  Receive Date: 20111103
  Receipt Date: 20111026
  Transmission Date: 20120403
  Serious: Yes (Hospitalization)
  Sender: FDA-Public Use
  Company Number: SE-ROCHE-1008727

PATIENT
  Sex: Male

DRUGS (6)
  1. ENALAPRIL MALEATE [Concomitant]
  2. METFORMIN HCL [Concomitant]
  3. LUCENTIS [Suspect]
  4. GLIBENKLAMID [Concomitant]
  5. LUCENTIS [Suspect]
     Indication: AGE-RELATED MACULAR DEGENERATION
     Dosage: 0.1 MLC
     Route: 050
     Dates: start: 20110117, end: 20110801
  6. FELODIPINE [Concomitant]

REACTIONS (1)
  - CEREBRAL INFARCTION [None]
